FAERS Safety Report 8536544-0 (Version None)
Quarter: 2012Q3

REPORT INFORMATION
  Report Type: 
  Country: None (occurrence: None)
  Receive Date: 20120725
  Receipt Date: 20120713
  Transmission Date: 20120928
  Serious: Yes (Hospitalization)
  Sender: FDA-Public Use
  Company Number: FR-ROCHE-1088437

PATIENT
  Sex: Female
  Weight: 89 kg

DRUGS (5)
  1. ACETAMINOPHEN [Concomitant]
     Dates: start: 20110101
  2. HERCEPTIN [Suspect]
     Indication: BREAST CANCER
     Dosage: LAST DOSE PRIOR TO SAE: 26/JUN/2012
     Route: 042
     Dates: start: 20111005
  3. TAMOXIFEN CITRATE [Concomitant]
     Dates: start: 20120610
  4. ABUFENE [Concomitant]
     Dates: start: 20111104
  5. WYTENS [Concomitant]
     Dates: start: 20100101

REACTIONS (1)
  - CHOLECYSTITIS [None]
